FAERS Safety Report 8822758 (Version 4)
Quarter: 2013Q2

REPORT INFORMATION
  Report Type: Report from Study
  Country: JP (occurrence: JP)
  Receive Date: 20121003
  Receipt Date: 20130514
  Transmission Date: 20140414
  Serious: Yes (Other)
  Sender: FDA-Public Use
  Company Number: JP-VERTEX PHARMACEUTICAL INC.-AE-2012-008459

PATIENT
  Age: 64 Year
  Sex: Male

DRUGS (6)
  1. VX-950 (TELAPREVIR) [Suspect]
     Indication: CHRONIC HEPATITIS C
     Dosage: 2250 MG, QD
     Route: 048
     Dates: start: 20120403, end: 20120601
  2. REBETOL [Suspect]
     Indication: CHRONIC HEPATITIS C
     Dosage: 800 MG, QD
     Route: 048
     Dates: start: 20120403, end: 20120523
  3. REBETOL [Suspect]
     Dosage: 600 MG, QD
     Route: 048
     Dates: start: 20120523, end: 20120615
  4. REBETOL [Suspect]
     Dosage: 400 MG, QD
     Route: 048
     Dates: start: 20120615, end: 20120921
  5. PEGINTRON [Concomitant]
     Dosage: 100 ?G/ BODY/ WEEK
     Route: 058
     Dates: start: 20120403
  6. PEGINTRON [Concomitant]
     Dosage: 1.5 ?G/KG/QW
     Route: 058
     Dates: end: 20120914

REACTIONS (1)
  - Erythema multiforme [Recovered/Resolved]
